FAERS Safety Report 11109741 (Version 1)
Quarter: 2015Q2

REPORT INFORMATION
  Report Type: Spontaneous
  Country: DE (occurrence: DE)
  Receive Date: 20150513
  Receipt Date: 20150513
  Transmission Date: 20150821
  Serious: Yes (Hospitalization, Other)
  Sender: FDA-Public Use
  Company Number: DE-MYLANLABS-2015M1015370

PATIENT

DRUGS (2)
  1. AZATHIOPRINE. [Suspect]
     Active Substance: AZATHIOPRINE
     Indication: CROHN^S DISEASE
     Dosage: UNK
  2. PREDNISOLONE. [Suspect]
     Active Substance: PREDNISOLONE
     Indication: CROHN^S DISEASE
     Dosage: UNK

REACTIONS (8)
  - Aphasia [Recovered/Resolved]
  - Pyrexia [Unknown]
  - Nausea [Unknown]
  - Faecal calprotectin increased [Recovered/Resolved]
  - Candida infection [Unknown]
  - Discomfort [Unknown]
  - Headache [Recovered/Resolved]
  - Pleocytosis [Unknown]
